FAERS Safety Report 5988804-5 (Version None)
Quarter: 2008Q4

REPORT INFORMATION
  Report Type: 
  Country: None (occurrence: None)
  Receive Date: 20081210
  Receipt Date: 20081204
  Transmission Date: 20090506
  Serious: Yes (Hospitalization, Disabling, Other)
  Sender: FDA-Public Use
  Company Number: PHHO2008DE14395

PATIENT
  Sex: Female
  Weight: 81.1 kg

DRUGS (3)
  1. ZOLEDRONATE T29581+SOLINJ+BM [Suspect]
     Indication: BREAST CANCER
     Dosage: 4 MG
     Route: 042
     Dates: start: 20080618
  2. VITAMIN D [Concomitant]
  3. CALCIUM [Concomitant]

REACTIONS (3)
  - DEBRIDEMENT [None]
  - OSTEONECROSIS [None]
  - TOOTH EXTRACTION [None]
